FAERS Safety Report 17103521 (Version 1)
Quarter: 2019Q4

REPORT INFORMATION
  Report Type: Report from Study
  Country: None (occurrence: PL)
  Receive Date: 20191203
  Receipt Date: 20191203
  Transmission Date: 20200122
  Serious: Yes (Other)
  Sender: FDA-Public Use
  Company Number: PL-UNICHEM PHARMACEUTICALS (USA) INC-UCM201911-000795

PATIENT
  Age: 82 Year
  Sex: Male

DRUGS (5)
  1. METOPROLOL. [Concomitant]
     Active Substance: METOPROLOL
     Indication: PRODUCT USED FOR UNKNOWN INDICATION
  2. PAROXETINE. [Suspect]
     Active Substance: PAROXETINE
     Indication: ANTIDEPRESSANT THERAPY
  3. ASA [Concomitant]
     Active Substance: ASPIRIN
     Indication: PRODUCT USED FOR UNKNOWN INDICATION
  4. L DOPA [Concomitant]
     Active Substance: LEVODOPA
     Indication: PARKINSON^S DISEASE
  5. AMLODIPINE [Suspect]
     Active Substance: AMLODIPINE BESYLATE
     Indication: CARDIOVASCULAR DISORDER

REACTIONS (3)
  - Peripheral swelling [Unknown]
  - Drug interaction [Unknown]
  - Headache [Unknown]
